FAERS Safety Report 23717415 (Version 1)
Quarter: 2024Q2

REPORT INFORMATION
  Report Type: Spontaneous
  Country: FR (occurrence: FR)
  Receive Date: 20240408
  Receipt Date: 20240408
  Transmission Date: 20240715
  Serious: Yes (Other)
  Sender: FDA-Public Use
  Company Number: None

PATIENT
  Age: 30 Year
  Sex: Male

DRUGS (4)
  1. PROPOFOL [Suspect]
     Active Substance: PROPOFOL
     Indication: Anaesthesia
     Dosage: 180 MG (MILLIGRAM) AT AN UNSPECIFIED FREQUENCY
     Route: 042
     Dates: start: 20230811
  2. CEFAZOLIN [Suspect]
     Active Substance: CEFAZOLIN
     Indication: Prophylaxis
     Dosage: 20 MG (MILLIGRAM) AT AN UNSPECIFIED FREQUENCY
     Route: 042
     Dates: start: 20230811
  3. XYLOCAINE [Suspect]
     Active Substance: LIDOCAINE HYDROCHLORIDE
     Indication: Anaesthesia
     Dosage: 20 MG (MILLIGRAM) AT AN UNSPECIFIED FREQUENCY
     Route: 042
     Dates: start: 20230811
  4. ROCURONIUM BROMIDE [Suspect]
     Active Substance: ROCURONIUM BROMIDE
     Indication: Anaesthesia
     Dosage: 90 MG (MILLIGRAM) AT AN UNSPECIFIED FREQUENCY
     Route: 042
     Dates: start: 20230811

REACTIONS (1)
  - Rash maculo-papular [Recovered/Resolved]

NARRATIVE: CASE EVENT DATE: 20230811
